FAERS Safety Report 13259739 (Version 1)
Quarter: 2017Q1

REPORT INFORMATION
  Report Type: Spontaneous
  Country: US (occurrence: US)
  Receive Date: 20170221
  Receipt Date: 20170221
  Transmission Date: 20170428
  Serious: Yes (Hospitalization)
  Sender: FDA-Public Use
  Company Number: None

PATIENT
  Age: 53 Year
  Sex: Male

DRUGS (10)
  1. ALENDRONATE [Concomitant]
     Active Substance: ALENDRONATE SODIUM
  2. LACTULOSE. [Concomitant]
     Active Substance: LACTULOSE
  3. RIFAXIMAN [Concomitant]
  4. PANTOPRAZOLE [Concomitant]
     Active Substance: PANTOPRAZOLE SODIUM
  5. REGLAN [Concomitant]
     Active Substance: METOCLOPRAMIDE HYDROCHLORIDE
  6. CACARB [Concomitant]
  7. INSULIN [Concomitant]
     Active Substance: INSULIN NOS
  8. TACROLIMUS ANHYDROUS. [Suspect]
     Active Substance: TACROLIMUS ANHYDROUS
     Indication: LIVER TRANSPLANT
     Route: 048
  9. URSIDOL [Concomitant]
  10. PREDNISONE. [Concomitant]
     Active Substance: PREDNISONE

REACTIONS (7)
  - Sepsis [None]
  - Dialysis [None]
  - Hepatorenal syndrome [None]
  - Hepatic failure [None]
  - Nephropathy toxic [None]
  - Multiple organ dysfunction syndrome [None]
  - Acute kidney injury [None]

NARRATIVE: CASE EVENT DATE: 20161003
